FAERS Safety Report 9692928 (Version 1)
Quarter: 2013Q4

REPORT INFORMATION
  Report Type: Spontaneous
  Country: US (occurrence: US)
  Receive Date: 20131118
  Receipt Date: 20131118
  Transmission Date: 20140711
  Serious: No
  Sender: FDA-Public Use
  Company Number: US-GLAXOSMITHKLINE-A1011264A

PATIENT
  Age: 54 Year
  Sex: Male

DRUGS (8)
  1. COREG CR [Suspect]
     Indication: HYPERTENSION
     Dosage: 20MG PER DAY
     Route: 048
     Dates: start: 201202
  2. LIPITOR [Concomitant]
  3. SERTRALINE [Concomitant]
  4. DIOVAN [Concomitant]
  5. BABY ASPIRIN [Concomitant]
  6. NIACIN [Concomitant]
  7. PRILOSEC [Concomitant]
  8. COFFEE [Concomitant]

REACTIONS (1)
  - Medication residue present [Not Recovered/Not Resolved]
